FAERS Safety Report 9441093 (Version 1)
Quarter: 2013Q3

REPORT INFORMATION
  Report Type: Spontaneous
  Country: US (occurrence: US)
  Receive Date: 20130805
  Receipt Date: 20130805
  Transmission Date: 20140515
  Serious: Yes (Hospitalization)
  Sender: FDA-Public Use
  Company Number: US-MYLANLABS-2013S1016543

PATIENT
  Age: 65 Year
  Sex: Male
  Weight: 66 kg

DRUGS (13)
  1. SIMVASTATIN [Suspect]
     Indication: HYPERLIPIDAEMIA
     Dosage: 40 MG/D
     Route: 048
  2. VORICONAZOLE [Interacting]
     Indication: ANTIFUNGAL PROPHYLAXIS
     Route: 048
  3. ATOVAQUONE [Concomitant]
     Indication: ANTIFUNGAL PROPHYLAXIS
     Route: 048
  4. ASPIRIN [Concomitant]
     Route: 048
  5. FOLIC ACID [Concomitant]
     Route: 048
  6. LISINOPRIL [Concomitant]
     Route: 048
  7. MAGNESIUM [Concomitant]
     Route: 048
  8. METFORMIN [Concomitant]
     Route: 048
  9. METOPROLOL [Concomitant]
     Route: 048
  10. TACROLIMUS [Concomitant]
     Route: 048
  11. VALACICLOVIR [Concomitant]
     Route: 048
  12. INSULIN [Concomitant]
     Route: 058
  13. INS ISOPHANE [Concomitant]
     Route: 065

REACTIONS (2)
  - Rhabdomyolysis [Recovered/Resolved]
  - Drug interaction [Recovered/Resolved]
